FAERS Safety Report 19751344 (Version 5)
Quarter: 2022Q1

REPORT INFORMATION
  Report Type: Report from Study
  Country: GB (occurrence: GB)
  Receive Date: 20210826
  Receipt Date: 20220208
  Transmission Date: 20220424
  Serious: Yes (Other)
  Sender: FDA-Public Use
  Company Number: GB-VERTEX PHARMACEUTICALS-2021-012989

PATIENT
  Age: 33 Year
  Sex: Female
  Weight: 51 kg

DRUGS (15)
  1. ELEXACAFTOR\IVACAFTOR\TEZACAFTOR [Suspect]
     Active Substance: ELEXACAFTOR\IVACAFTOR\TEZACAFTOR
     Indication: Cystic fibrosis
     Dosage: 200MG VX-445/ 100 MG TEZ/ 150 MG IVA; 150 MG IVA, DAILY
     Route: 048
     Dates: start: 20190410
  2. CAYSTON [Concomitant]
     Active Substance: AZTREONAM
     Indication: Cystic fibrosis lung
     Dosage: 75 MG, TID
     Dates: start: 20210726
  3. HYDROXYCHLOROQUINE [Concomitant]
     Active Substance: HYDROXYCHLOROQUINE
     Indication: Arthralgia
     Dosage: 200 MG, DAILY
     Route: 048
     Dates: start: 20210616, end: 20210819
  4. ALBUTEROL [Concomitant]
     Active Substance: ALBUTEROL
     Indication: Cystic fibrosis lung
     Dosage: 2 PUFFS, PRN
  5. URSODIOL [Concomitant]
     Active Substance: URSODIOL
     Indication: Cystic fibrosis hepatic disease
     Dosage: 500 MG, BID
     Route: 048
  6. SERETIDE [Concomitant]
     Active Substance: FLUTICASONE PROPIONATE\SALMETEROL XINAFOATE
     Indication: Cystic fibrosis lung
     Dosage: 250 EVOHALER, BID
  7. VITAMIN E [Concomitant]
     Active Substance: .ALPHA.-TOCOPHEROL
     Indication: Malabsorption
     Dosage: 50 MG, DAILY
  8. ERGOCALCIFEROL\RETINOL [Concomitant]
     Active Substance: ERGOCALCIFEROL\RETINOL
     Indication: Malabsorption
     Dosage: 5000/ 400 IU, DAILY
  9. AZITHROMYCIN [Concomitant]
     Active Substance: AZITHROMYCIN
     Indication: Cystic fibrosis lung
     Dosage: 500 MG, TID
     Route: 048
  10. CALCIFEROL CO [Concomitant]
     Indication: Malabsorption
     Dosage: 1 DOSAGE FORM, DAILY
  11. CREON [Concomitant]
     Active Substance: PANCRELIPASE AMYLASE\PANCRELIPASE LIPASE\PANCRELIPASE PROTEASE
     Indication: Pancreatic failure
     Dosage: 1 DOSAGE FORM, PRN
     Route: 048
  12. DORNASE ALFA [Concomitant]
     Active Substance: DORNASE ALFA
     Indication: Cystic fibrosis lung
     Dosage: 2.5 MG, DAILY
  13. FLUTICASONE PROPIONATE [Concomitant]
     Active Substance: FLUTICASONE PROPIONATE
     Indication: Nasal polyps
     Dosage: 400 MICROGRAM, BID
     Route: 045
  14. LEVEMIR [Concomitant]
     Active Substance: INSULIN DETEMIR
     Indication: Cystic fibrosis related diabetes
     Dosage: 10 UNITS, BID
     Route: 058
  15. NOVORAPID [Concomitant]
     Active Substance: INSULIN ASPART
     Indication: Cystic fibrosis related diabetes
     Dosage: 3-4 UNITS, TID
     Route: 058

REACTIONS (1)
  - Blood alkaline phosphatase increased [Recovered/Resolved]

NARRATIVE: CASE EVENT DATE: 20210818
